FAERS Safety Report 10690754 (Version 1)
Quarter: 2015Q1

REPORT INFORMATION
  Report Type: Spontaneous
  Country: US (occurrence: US)
  Receive Date: 20150105
  Receipt Date: 20150105
  Transmission Date: 20150720
  Serious: Yes (Other)
  Sender: FDA-Public Use
  Company Number: US-PFIZER INC-2014361717

PATIENT
  Age: 58 Year
  Sex: Female
  Weight: 61 kg

DRUGS (7)
  1. CYCLOBENZAPRINE HCL [Suspect]
     Active Substance: CYCLOBENZAPRINE HYDROCHLORIDE
     Indication: HYPOTONIA
     Dosage: 10 MG, 3X/DAY
     Route: 048
     Dates: start: 2012, end: 20141121
  2. LEVOTHYROXINE [Concomitant]
     Active Substance: LEVOTHYROXINE
     Dosage: 75 ?G, DAILY
     Dates: start: 2003
  3. MORPHINE SULFATE EXTENDED RELEASE [Concomitant]
     Active Substance: MORPHINE SULFATE
     Dosage: 15 MG, DAILY
     Dates: start: 201202
  4. OXYCODONE [Concomitant]
     Active Substance: OXYCODONE
     Dosage: 10/325 MG FOUR TIMES DAILY
     Dates: start: 201202
  5. CITRACAL [Concomitant]
     Active Substance: CALCIUM CITRATE
     Dosage: UNK
  6. LYRICA [Suspect]
     Active Substance: PREGABALIN
     Dosage: 75 MG, UNK
     Dates: start: 201408, end: 2014
  7. VITAMIN D [Concomitant]
     Active Substance: CHOLECALCIFEROL
     Dosage: 1000 IU, UNK

REACTIONS (15)
  - Hallucination [Unknown]
  - Weight decreased [Not Recovered/Not Resolved]
  - Diarrhoea [Recovering/Resolving]
  - Gastrointestinal hypomotility [Unknown]
  - Headache [Recovered/Resolved]
  - Tinnitus [Recovered/Resolved]
  - Hypersomnia [Unknown]
  - Decreased appetite [Not Recovered/Not Resolved]
  - Chest pain [Unknown]
  - Faeces hard [Recovered/Resolved]
  - Fall [Unknown]
  - Asthenia [Not Recovered/Not Resolved]
  - Malaise [Not Recovered/Not Resolved]
  - Bone marrow failure [Unknown]
  - Nausea [Recovering/Resolving]

NARRATIVE: CASE EVENT DATE: 2014
